FAERS Safety Report 4753991-3 (Version None)
Quarter: 2005Q3

REPORT INFORMATION
  Report Type: 
  Country: None (occurrence: None)
  Receive Date: 20050826
  Receipt Date: 20031121
  Transmission Date: 20060218
  Serious: Yes (Hospitalization, Disabling)
  Sender: FDA-Public Use
  Company Number: US-MERCK-0311USA02532

PATIENT
  Age: 35 Year
  Sex: Male
  Weight: 91 kg

DRUGS (9)
  1. VIOXX [Suspect]
     Indication: INFLAMMATION
     Route: 048
     Dates: start: 20000202, end: 20030110
  2. VIOXX [Suspect]
     Indication: PAIN
     Route: 048
     Dates: start: 20000202, end: 20030110
  3. SYNTHROID [Concomitant]
     Indication: THYROID DISORDER
     Route: 065
  4. ZYRTEC [Concomitant]
     Indication: HYPERSENSITIVITY
     Route: 065
  5. NASONEX [Concomitant]
     Indication: HYPERSENSITIVITY
     Route: 065
  6. DARVOCET-N 100 [Concomitant]
     Indication: PAIN
     Route: 065
     Dates: start: 19980101, end: 20030101
  7. PROZAC [Concomitant]
     Indication: DEPRESSION
     Route: 065
  8. SERZONE [Concomitant]
     Indication: DEPRESSION
     Route: 065
     Dates: start: 20000801, end: 20001001
  9. MOTRIN [Concomitant]
     Route: 065
     Dates: start: 20000101

REACTIONS (17)
  - AMNESIA [None]
  - ANXIETY [None]
  - BLOOD CHOLESTEROL INCREASED [None]
  - BLOOD THYROID STIMULATING HORMONE DECREASED [None]
  - BRAIN OEDEMA [None]
  - CEREBROVASCULAR ACCIDENT [None]
  - CERVICOBRACHIAL SYNDROME [None]
  - CHEST WALL PAIN [None]
  - DEPRESSION [None]
  - FATIGUE [None]
  - HYPOCALCAEMIA [None]
  - HYPOKALAEMIA [None]
  - INJURY [None]
  - INTRACRANIAL ANEURYSM [None]
  - MENTAL DISABILITY [None]
  - MENTAL STATUS CHANGES POSTOPERATIVE [None]
  - STRESS [None]
